FAERS Safety Report 21059622 (Version 1)
Quarter: 2022Q3

REPORT INFORMATION
  Report Type: Spontaneous
  Country: US (occurrence: US)
  Receive Date: 20220708
  Receipt Date: 20220708
  Transmission Date: 20221026
  Serious: No
  Sender: FDA-Public Use
  Company Number: US-PFIZER INC-2020275950

PATIENT
  Age: 77 Year

DRUGS (1)
  1. PREMARIN [Suspect]
     Active Substance: ESTROGENS, CONJUGATED
     Dosage: UNK, AS NEEDED(I TRY NOT TO USE IT AS OFTEN AS I REALLY NEED TO)

REACTIONS (2)
  - Pain [Unknown]
  - Intentional underdose [Unknown]
